FAERS Safety Report 21337361 (Version 3)
Quarter: 2023Q4

REPORT INFORMATION
  Report Type: Report from Study
  Country: CO (occurrence: CO)
  Receive Date: 20220915
  Receipt Date: 20231225
  Transmission Date: 20240110
  Serious: Yes (Hospitalization, Other)
  Sender: FDA-Public Use
  Company Number: CO-NOVARTISPH-NVSC2022CO207154

PATIENT
  Sex: Male

DRUGS (3)
  1. MEKINIST [Suspect]
     Active Substance: TRAMETINIB DIMETHYL SULFOXIDE
     Indication: Metastatic malignant melanoma
     Dosage: UNK
     Route: 048
  2. MEKINIST [Suspect]
     Active Substance: TRAMETINIB DIMETHYL SULFOXIDE
     Dosage: 39 MG, BID
     Route: 048
     Dates: end: 202208
  3. TAFINLAR [Suspect]
     Active Substance: DABRAFENIB MESYLATE
     Indication: Metastatic malignant melanoma
     Dosage: UNK
     Route: 048

REACTIONS (5)
  - Abdominal discomfort [Unknown]
  - Dysbiosis [Unknown]
  - Discouragement [Unknown]
  - Incorrect dose administered [Unknown]
  - COVID-19 [Unknown]
